FAERS Safety Report 8179556-1 (Version None)
Quarter: 2012Q1

REPORT INFORMATION
  Report Type: 
  Country: None (occurrence: None)
  Receive Date: 20120229
  Receipt Date: 20120215
  Transmission Date: 20120608
  Serious: Yes (Life-Threatening, Hospitalization, Disabling, Other)
  Sender: FDA-Public Use
  Company Number: 2009AL002410

PATIENT
  Age: 56 Year
  Sex: Female

DRUGS (58)
  1. DIGOXIN [Suspect]
     Indication: PRODUCT USED FOR UNKNOWN INDICATION
     Dosage: 0.125 MG, QD, PO
     Route: 048
     Dates: start: 20030401, end: 20090828
  2. HUMULIN R [Concomitant]
  3. BIMETANIDE [Concomitant]
  4. SIMVASTATIN [Concomitant]
  5. BUMEX [Concomitant]
  6. AMARYL [Concomitant]
  7. DARVOCET [Concomitant]
  8. TRAMADOL HCL [Concomitant]
  9. NOVOLIN N [Concomitant]
  10. PLAVIX [Concomitant]
  11. XALATAN [Concomitant]
  12. AMOXICILLIN [Concomitant]
  13. GLIMEPIRIDE [Concomitant]
  14. METHAZOLAMIDE [Concomitant]
  15. ZOCOR [Concomitant]
  16. METOPROLOL SUCCINATE [Concomitant]
  17. ASPIRIN [Concomitant]
  18. ASCORBIC ACID [Concomitant]
  19. SULFACETAMIDE [Concomitant]
  20. BLEPHAMIDE [Concomitant]
  21. RENAGEL [Concomitant]
  22. CENTRUM [Concomitant]
  23. AUGMENTIN '125' [Concomitant]
  24. ...ETAGAN [Concomitant]
  25. ELAVIL [Concomitant]
  26. RELION/NOVO [Concomitant]
  27. LISINOPRIL [Concomitant]
  28. GLUCOPHAGE [Concomitant]
  29. ZESTRIL [Concomitant]
  30. LEVAQUIN [Concomitant]
  31. POTASSIUM CHLORIDE [Concomitant]
  32. TRIMOX [Concomitant]
  33. TEQUIN [Concomitant]
  34. KLOR-CON [Concomitant]
  35. PROPO-N-APAP [Concomitant]
  36. WARFARIN SODIUM [Concomitant]
  37. LUMIGAN [Concomitant]
  38. COSEPT [Concomitant]
  39. METFORMIN HCL [Concomitant]
  40. ZEMPLAR [Concomitant]
  41. POTASSIUM CHLORIDE [Concomitant]
  42. KAYEXALATE [Concomitant]
  43. LASIX [Concomitant]
  44. ULTRAM [Concomitant]
  45. AMITRIPTYLINE HCL [Concomitant]
  46. TOPROL-XL [Concomitant]
  47. CITRACAL [Concomitant]
  48. MORPHINE [Concomitant]
  49. ROCEPHIN [Concomitant]
  50. METOCLOPRAM [Concomitant]
  51. CIPROFLOXACIN [Concomitant]
  52. FERGON [Concomitant]
  53. COUMADIN [Concomitant]
  54. PROTONIX [Concomitant]
  55. VERAPAMIL [Concomitant]
  56. CHLORIDE [Concomitant]
  57. MIRALAX [Concomitant]
  58. ULTRACET [Concomitant]

REACTIONS (28)
  - TREMOR [None]
  - COUGH [None]
  - BRONCHITIS [None]
  - DYSPHAGIA [None]
  - INTERNATIONAL NORMALISED RATIO DECREASED [None]
  - DYSURIA [None]
  - MENTAL STATUS CHANGES [None]
  - HYPERLIPIDAEMIA [None]
  - FATIGUE [None]
  - DIABETES MELLITUS [None]
  - NECK PAIN [None]
  - INJURY [None]
  - DYSPNOEA [None]
  - HEADACHE [None]
  - ECONOMIC PROBLEM [None]
  - HYPERTENSION [None]
  - TOXICITY TO VARIOUS AGENTS [None]
  - FALL [None]
  - AZOTAEMIA [None]
  - PROTHROMBIN TIME SHORTENED [None]
  - RENAL FAILURE [None]
  - PULMONARY CONGESTION [None]
  - DECREASED APPETITE [None]
  - CARDIOACTIVE DRUG LEVEL INCREASED [None]
  - SNEEZING [None]
  - ASTHENIA [None]
  - ABDOMINAL PAIN [None]
  - HYPERKALAEMIA [None]
